FAERS Safety Report 15401060 (Version 3)
Quarter: 2018Q4

REPORT INFORMATION
  Report Type: Report from Study
  Country: DE (occurrence: DE)
  Receive Date: 20180919
  Receipt Date: 20181009
  Transmission Date: 20190204
  Serious: Yes (Hospitalization)
  Sender: FDA-Public Use
  Company Number: DE-JNJFOC-20180915285

PATIENT
  Age: 74 Year
  Sex: Male
  Weight: 106 kg

DRUGS (9)
  1. STELARA [Suspect]
     Active Substance: USTEKINUMAB
     Indication: PSORIASIS
     Route: 058
     Dates: start: 20161013
  2. STELARA [Suspect]
     Active Substance: USTEKINUMAB
     Indication: PSORIASIS
     Route: 058
     Dates: start: 20161013
  3. ECURAL [Concomitant]
     Active Substance: MOMETASONE
     Indication: PSORIASIS
     Route: 061
     Dates: end: 20161115
  4. METFORMIN [Concomitant]
     Active Substance: METFORMIN HYDROCHLORIDE
     Indication: DIABETES MELLITUS
     Route: 065
     Dates: start: 2005
  5. DAIVOBET [Concomitant]
     Active Substance: BETAMETHASONE DIPROPIONATE\CALCIPOTRIENE
     Indication: PSORIASIS
     Route: 061
     Dates: end: 20161115
  6. CURATODERM [Concomitant]
     Indication: PSORIASIS
     Route: 061
     Dates: start: 20161005, end: 20161115
  7. SOLARAZE [Concomitant]
     Active Substance: DICLOFENAC SODIUM
     Indication: PSORIASIS
     Route: 061
     Dates: start: 20161005, end: 20170410
  8. DAIVONEX [Concomitant]
     Active Substance: CALCIPOTRIENE
     Indication: PSORIASIS
     Route: 061
     Dates: end: 20161115
  9. KREON [Concomitant]
     Active Substance: PANCRELIPASE
     Indication: PANCREATITIS
     Route: 065
     Dates: start: 2014

REACTIONS (2)
  - Basal cell carcinoma [Not Recovered/Not Resolved]
  - Ectropion [Recovered/Resolved]

NARRATIVE: CASE EVENT DATE: 20180806
